FAERS Safety Report 12420183 (Version 1)
Quarter: 2016Q2

REPORT INFORMATION
  Report Type: Spontaneous
  Country: US (occurrence: US)
  Receive Date: 20160531
  Receipt Date: 20160531
  Transmission Date: 20160815
  Serious: Yes (Hospitalization)
  Sender: FDA-Public Use
  Company Number: US-PFIZER INC-2016270080

PATIENT
  Age: 3 Year
  Sex: Male
  Weight: 17.37 kg

DRUGS (6)
  1. ETOPOSIDE. [Suspect]
     Active Substance: ETOPOSIDE
     Indication: ACUTE MONOCYTIC LEUKAEMIA
     Dosage: UNK
     Dates: start: 20140613
  2. COLACE [Concomitant]
     Active Substance: DOCUSATE SODIUM
     Indication: CONSTIPATION
     Dosage: 40 MG (4 ML), DAILY AS NEEDED
  3. DAUNORUBICIN [Suspect]
     Active Substance: DAUNORUBICIN
     Indication: ACUTE MONOCYTIC LEUKAEMIA
     Dosage: UNK
     Dates: start: 20140613
  4. CYTARABINE. [Suspect]
     Active Substance: CYTARABINE
     Indication: ACUTE MONOCYTIC LEUKAEMIA
     Dosage: UNK
     Dates: start: 20140613
  5. VORINOSTAT [Suspect]
     Active Substance: VORINOSTAT
     Indication: ACUTE MONOCYTIC LEUKAEMIA
     Dosage: UNK
     Dates: start: 20140613
  6. MIRALAX /06344701/ [Concomitant]
     Indication: CONSTIPATION
     Dosage: 8.5 GM (1/2 CAPFUL), DAILY, AS NEEDED

REACTIONS (3)
  - Disease progression [Unknown]
  - Cellulitis [Unknown]
  - Acute monocytic leukaemia [Unknown]
